FAERS Safety Report 9305018 (Version 1)
Quarter: 2013Q2

REPORT INFORMATION
  Report Type: Spontaneous
  Country: NL (occurrence: NL)
  Receive Date: 20130523
  Receipt Date: 20130523
  Transmission Date: 20140414
  Serious: Yes (Other)
  Sender: FDA-Public Use
  Company Number: NL-AMGEN-NLDSP2013035639

PATIENT
  Age: 69 Year
  Sex: Male

DRUGS (4)
  1. ENBREL [Suspect]
     Indication: RHEUMATOID ARTHRITIS
     Dosage: 50 MG, WEEKLY
     Dates: start: 2009, end: 201206
  2. ENBREL [Suspect]
     Dosage: 25 MG, WEEKLY
     Dates: start: 201206, end: 2012
  3. ENBREL [Suspect]
     Dosage: 50 MG, WEEKLY
     Dates: start: 2012
  4. DICLOFENAC [Suspect]
     Indication: ARTHRITIS
     Dosage: UNK
     Dates: start: 201206

REACTIONS (2)
  - Gastric haemorrhage [Recovered/Resolved]
  - Arthritis [Recovered/Resolved]
